FAERS Safety Report 20046827 (Version 2)
Quarter: 2021Q4

REPORT INFORMATION
  Report Type: Spontaneous
  Country: DE (occurrence: DE)
  Receive Date: 20211109
  Receipt Date: 20211203
  Transmission Date: 20220304
  Serious: Yes (Hospitalization, Other)
  Sender: FDA-Public Use
  Company Number: DE-JNJFOC-20211052262

PATIENT
  Age: 53 Year
  Sex: Female

DRUGS (15)
  1. DEXAMETHASONE [Suspect]
     Active Substance: DEXAMETHASONE
     Indication: Neuralgia
     Route: 065
     Dates: start: 20210601
  2. METOCLOPRAMIDE [Suspect]
     Active Substance: METOCLOPRAMIDE
     Indication: Neuralgia
     Route: 065
     Dates: start: 20210806, end: 20210829
  3. TRAMADOL [Suspect]
     Active Substance: TRAMADOL
     Indication: Neuralgia
     Route: 065
     Dates: start: 20210813
  4. TRAMADOL [Suspect]
     Active Substance: TRAMADOL
     Route: 065
     Dates: start: 20210805
  5. TRAMADOL [Suspect]
     Active Substance: TRAMADOL
     Route: 065
     Dates: start: 20210806, end: 20210812
  6. METAMIZOLE [Suspect]
     Active Substance: METAMIZOLE
     Indication: Product used for unknown indication
     Route: 065
     Dates: start: 20210714
  7. METAMIZOLE [Suspect]
     Active Substance: METAMIZOLE
     Route: 065
     Dates: start: 20210628
  8. METAMIZOLE [Suspect]
     Active Substance: METAMIZOLE
     Route: 065
     Dates: start: 20210629, end: 20210713
  9. METAMIZOLE [Suspect]
     Active Substance: METAMIZOLE
     Route: 065
     Dates: start: 20210714
  10. RISPERDAL [Suspect]
     Active Substance: RISPERIDONE
     Indication: Hallucination
     Route: 065
  11. RISPERDAL [Suspect]
     Active Substance: RISPERIDONE
     Indication: Psychotic disorder
     Route: 065
     Dates: start: 20210628
  12. RISPERDAL [Suspect]
     Active Substance: RISPERIDONE
     Indication: Amnestic disorder
     Route: 065
     Dates: start: 20210601, end: 20210627
  13. PREGABALIN [Suspect]
     Active Substance: PREGABALIN
     Indication: Neuralgia
     Dosage: 25-150 MG
     Route: 065
     Dates: start: 20210729
  14. PREGABALIN [Suspect]
     Active Substance: PREGABALIN
     Route: 065
     Dates: start: 20210628, end: 20210630
  15. PREGABALIN [Suspect]
     Active Substance: PREGABALIN
     Dosage: 25-150 MG
     Route: 065
     Dates: start: 20210729

REACTIONS (1)
  - Hepatic enzyme increased [Not Recovered/Not Resolved]

NARRATIVE: CASE EVENT DATE: 20210628
